FAERS Safety Report 8310908 (Version 4)
Quarter: 2018Q4

REPORT INFORMATION
  Report Type: Report from Study
  Country: JP (occurrence: JP)
  Receive Date: 20111226
  Receipt Date: 20181210
  Transmission Date: 20190205
  Serious: Yes (Life-Threatening)
  Sender: FDA-Public Use
  Company Number: PHHY2009JP26412

PATIENT
  Age: 67 Year
  Sex: Male

DRUGS (7)
  1. ITOROL [Concomitant]
     Active Substance: ISOSORBIDE MONONITRATE
     Indication: CHRONIC MYELOID LEUKAEMIA
     Dosage: 40 MG, QD
     Route: 048
     Dates: start: 20080501
  2. BAYASPIRIN [Suspect]
     Active Substance: ASPIRIN
     Indication: CHRONIC MYELOID LEUKAEMIA
     Dosage: 100 MG, QD
     Route: 048
     Dates: start: 20080501
  3. ARTIST [Concomitant]
     Active Substance: CARVEDILOL
     Indication: CHRONIC MYELOID LEUKAEMIA
     Dosage: 10 MG, QD
     Route: 048
     Dates: start: 20080805
  4. RENIVACE [Concomitant]
     Active Substance: ENALAPRIL
     Indication: CHRONIC MYELOID LEUKAEMIA
     Dosage: 2.5 MG, QD
     Route: 065
     Dates: start: 20080623
  5. LIPITOR [Concomitant]
     Active Substance: ATORVASTATIN CALCIUM
     Indication: PRODUCT USED FOR UNKNOWN INDICATION
     Dosage: 10 MG, QD
     Route: 048
     Dates: start: 20080623
  6. TASIGNA [Suspect]
     Active Substance: NILOTINIB
     Indication: CHRONIC MYELOID LEUKAEMIA
     Dosage: 100 MG, BID
     Route: 048
     Dates: start: 20090508, end: 20090619
  7. TASIGNA [Suspect]
     Active Substance: NILOTINIB
     Dosage: 200 MG, QD
     Route: 048
     Dates: start: 20090904, end: 20090925

REACTIONS (9)
  - Gingival bleeding [Unknown]
  - Haemoglobin decreased [Unknown]
  - Dyspnoea exertional [Unknown]
  - Insomnia [Not Recovered/Not Resolved]
  - Small intestinal haemorrhage [Recovering/Resolving]
  - Faeces discoloured [Unknown]
  - Platelet count decreased [Not Recovered/Not Resolved]
  - Decreased appetite [Not Recovered/Not Resolved]
  - Eczema [Recovering/Resolving]

NARRATIVE: CASE EVENT DATE: 20090515
